FAERS Safety Report 10028582 (Version 2)
Quarter: 2014Q1

REPORT INFORMATION
  Report Type: Report from Study
  Country: PT (occurrence: PT)
  Receive Date: 20140321
  Receipt Date: 20140326
  Transmission Date: 20141002
  Serious: Yes (Life-Threatening, Hospitalization)
  Sender: FDA-Public Use
  Company Number: PT-TEVA-469662USA

PATIENT
  Age: 73 Year
  Sex: Male
  Weight: 45.9 kg

DRUGS (5)
  1. BENDAMUSTINE [Suspect]
     Indication: CHRONIC LYMPHOCYTIC LEUKAEMIA
     Route: 042
     Dates: start: 20140218
  2. BENDAMUSTINE [Suspect]
     Indication: CHRONIC LYMPHOCYTIC LEUKAEMIA
     Dosage: UNKNOWN/D
     Route: 042
     Dates: start: 20140114
  3. RITUXIMAB [Suspect]
     Indication: CHRONIC LYMPHOCYTIC LEUKAEMIA
     Dosage: UNKNOWN/D
     Route: 042
     Dates: start: 20140217
  4. RITUXIMAB [Suspect]
     Indication: CHRONIC LYMPHOCYTIC LEUKAEMIA
     Dosage: UNKNOWN/D
     Route: 042
     Dates: start: 20140113
  5. IBRUTINIB [Suspect]
     Indication: CHRONIC LYMPHOCYTIC LEUKAEMIA
     Dosage: 420 MILLIGRAM DAILY;
     Dates: start: 20140114, end: 20140309

REACTIONS (1)
  - Cytomegalovirus infection [Unknown]
